FAERS Safety Report 5075355-8 (Version None)
Quarter: 2006Q3

REPORT INFORMATION
  Report Type: 
  Country: None (occurrence: None)
  Receive Date: 20060807
  Receipt Date: 20060807
  Transmission Date: 20061208
  Serious: Yes (Other)
  Sender: FDA-Public Use
  Company Number: None

PATIENT
  Age: 61 Year
  Sex: Male

DRUGS (6)
  1. ENALAPRIL MALEATE [Suspect]
     Indication: HYPERTENSION
     Dosage: 10 MG   DAILY   PO   (DURATION: YEARS)
     Route: 048
  2. LUNESTA [Suspect]
     Dosage: PO
     Route: 048
  3. TRICOR [Concomitant]
  4. WELLBUTRIN [Concomitant]
  5. TROSPIUM -SANCTURA- [Concomitant]
  6. HUMALOG MIX 75/25 [Concomitant]

REACTIONS (8)
  - CHOKING [None]
  - DYSPHAGIA [None]
  - DYSPHONIA [None]
  - INFECTION [None]
  - PALATAL OEDEMA [None]
  - PHARYNGOLARYNGEAL PAIN [None]
  - SENSATION OF FOREIGN BODY [None]
  - UVULITIS [None]
